FAERS Safety Report 9767921 (Version 3)
Quarter: 2014Q1

REPORT INFORMATION
  Report Type: Report from Study
  Country: CA (occurrence: CA)
  Receive Date: 20131217
  Receipt Date: 20140203
  Transmission Date: 20141002
  Serious: Yes (Other)
  Sender: FDA-Public Use
  Company Number: PHHY2013CA146115

PATIENT
  Age: 65 Year
  Sex: Female
  Weight: 85.8 kg

DRUGS (6)
  1. ACLASTA [Suspect]
     Indication: OSTEOPOROSIS
     Dosage: UNK UKN, UNK
     Route: 042
     Dates: start: 20111230
  2. ACLASTA [Suspect]
     Dosage: UNK UKN, UNK
     Route: 042
     Dates: start: 20121220
  3. METFORMIN [Concomitant]
     Dosage: 1000 MG, BID
  4. COVERSYL//PERINDOPRIL ARGININE [Concomitant]
     Dosage: 8 MG, QD
     Route: 048
  5. ROSUVASTATIN [Concomitant]
     Dosage: 40 MG, QD
  6. NOVORAPID [Concomitant]
     Dosage: UNK UKN, UNK

REACTIONS (12)
  - Joint range of motion decreased [Recovering/Resolving]
  - Impaired healing [Unknown]
  - Bone erosion [Unknown]
  - Exostosis [Unknown]
  - Osteonecrosis [Unknown]
  - Fall [Unknown]
  - Humerus fracture [Unknown]
  - Musculoskeletal stiffness [Unknown]
  - Musculoskeletal pain [Unknown]
  - Discomfort [Recovering/Resolving]
  - Blood pressure systolic increased [Unknown]
  - Pain in extremity [Recovered/Resolved]
